FAERS Safety Report 4510938-2 (Version None)
Quarter: 2004Q4

REPORT INFORMATION
  Report Type: 
  Country: None (occurrence: None)
  Receive Date: 20040928
  Receipt Date: 20040609
  Transmission Date: 20050328
  Serious: No
  Sender: FDA-Public Use
  Company Number: 04P-163-0263299-00

PATIENT
  Age: 71 Year
  Sex: Female
  Weight: 47.1741 kg

DRUGS (9)
  1. HUMIRA [Suspect]
     Indication: RHEUMATOID ARTHRITIS
     Dosage: 40 MG, 1 IN 2 WK, SUBCUTANEOUS
     Route: 058
     Dates: start: 20030101
  2. ROFECOXIB [Concomitant]
  3. LEVOTHYROXINE SODIUM [Concomitant]
  4. CALCIUM [Concomitant]
  5. GLUCOSAMINE  W/CHONDROITIN SULFATES [Concomitant]
  6. MULTI-VITAMINS [Concomitant]
  7. MAGNESIUM [Concomitant]
  8. ALPHALIPOIC [Concomitant]
  9. ALENDRONATE SODIUM [Concomitant]

REACTIONS (1)
  - INJECTION SITE HAEMORRHAGE [None]
